FAERS Safety Report 4973282-5 (Version None)
Quarter: 2006Q2

REPORT INFORMATION
  Report Type: 
  Country: None (occurrence: None)
  Receive Date: 20060414
  Receipt Date: 20060207
  Transmission Date: 20061013
  Serious: Yes (Life-Threatening)
  Sender: FDA-Public Use
  Company Number: US-ABBOTT-06P-163-0325234-00

PATIENT
  Sex: Male

DRUGS (2)
  1. TARKA [Suspect]
     Indication: HYPERTENSION
     Dosage: NOT REPORTED
     Route: 048
  2. ATENOLOL [Concomitant]
     Indication: DRUG USE FOR UNKNOWN INDICATION
     Route: 048

REACTIONS (2)
  - BRADYCARDIA [None]
  - HYPERTENSION [None]
